FAERS Safety Report 8826236 (Version 3)
Quarter: 2015Q1

REPORT INFORMATION
  Report Type: Report from Study
  Country: US (occurrence: US)
  Receive Date: 20121005
  Receipt Date: 20150324
  Transmission Date: 20150721
  Serious: Yes (Death, Other)
  Sender: FDA-Public Use
  Company Number: US-ROCHE-1141523

PATIENT
  Sex: Male
  Weight: 83.08 kg

DRUGS (8)
  1. 5-FU [Concomitant]
     Active Substance: FLUOROURACIL
     Indication: COLON CANCER
     Dosage: D1, D2 OF 2 WEEKS
     Route: 042
     Dates: start: 20111101, end: 20120203
  2. ALOXI [Concomitant]
     Active Substance: PALONOSETRON HYDROCHLORIDE
     Dosage: ANTI EMETIC
     Route: 042
     Dates: start: 20111101, end: 20120203
  3. OXALIPLATIN. [Concomitant]
     Active Substance: OXALIPLATIN
     Indication: COLON CANCER
     Route: 042
     Dates: start: 20111101, end: 20120203
  4. LEUCOVORIN [Concomitant]
     Active Substance: LEUCOVORIN
     Indication: COLON CANCER
     Dosage: D1, D2 OF 2 WEEKS
     Route: 042
     Dates: start: 20111101, end: 20120203
  5. AVASTIN [Suspect]
     Active Substance: BEVACIZUMAB
     Indication: COLON CANCER
     Route: 042
     Dates: start: 20111101, end: 20120203
  6. HEPARIN [Concomitant]
     Active Substance: HEPARIN SODIUM
     Route: 042
  7. NORMAL SALINE [Concomitant]
     Active Substance: SODIUM CHLORIDE
     Route: 065
  8. DECADRON [Concomitant]
     Active Substance: DEXAMETHASONE
     Indication: PREMEDICATION
     Route: 042
     Dates: start: 20111101, end: 20120203

REACTIONS (2)
  - Death [Fatal]
  - Cerebrovascular accident [Recovering/Resolving]
